FAERS Safety Report 4600618-7 (Version None)
Quarter: 2005Q1

REPORT INFORMATION
  Report Type: 
  Country: None (occurrence: None)
  Receive Date: 20050127
  Receipt Date: 20041008
  Transmission Date: 20050727
  Serious: No
  Sender: FDA-Public Use
  Company Number: USA041080733

PATIENT
  Age: 45 Year
  Sex: Female
  Weight: 65 kg

DRUGS (3)
  1. STRATTERA [Suspect]
     Indication: BIPOLAR DISORDER
     Dosage: 18 MG DAY
     Dates: start: 20040901
  2. SEROQUEL [Concomitant]
  3. ZOLOFT [Concomitant]

REACTIONS (11)
  - ABNORMAL SLEEP-RELATED EVENT [None]
  - BRUXISM [None]
  - DISTURBANCE IN ATTENTION [None]
  - DRUG INEFFECTIVE [None]
  - INITIAL INSOMNIA [None]
  - INSOMNIA [None]
  - LOGORRHOEA [None]
  - MENTAL STATUS CHANGES [None]
  - NAUSEA [None]
  - PERSONALITY CHANGE [None]
  - PSYCHOMOTOR HYPERACTIVITY [None]
